FAERS Safety Report 8118313-9 (Version None)
Quarter: 2012Q1

REPORT INFORMATION
  Report Type: 
  Country: None (occurrence: None)
  Receive Date: 20120207
  Receipt Date: 20120131
  Transmission Date: 20120608
  Serious: Yes (Hospitalization, Congenital Anomaly)
  Sender: FDA-Public Use
  Company Number: DK-PFIZER INC-2012027016

PATIENT
  Age: 1 Day
  Sex: Female
  Weight: 3.5 kg

DRUGS (1)
  1. EFFEXOR [Suspect]
     Indication: ANXIETY
     Dosage: DOSE: 225 MG. STRENGH 150 MG
     Route: 064
     Dates: start: 20090325

REACTIONS (2)
  - ATRIAL SEPTAL DEFECT [None]
  - MATERNAL EXPOSURE TIMING UNSPECIFIED [None]
